FAERS Safety Report 7604499-9 (Version None)
Quarter: 2011Q3

REPORT INFORMATION
  Report Type: 
  Country: None (occurrence: None)
  Receive Date: 20110712
  Receipt Date: 20110630
  Transmission Date: 20111222
  Serious: Yes (Other)
  Sender: FDA-Public Use
  Company Number: US-JNJFOC-20110703493

PATIENT
  Sex: Female

DRUGS (6)
  1. VITAMIN TAB [Concomitant]
     Indication: MEDICAL DIET
     Route: 065
  2. ASPIRIN [Concomitant]
     Indication: CARDIAC DISORDER
     Route: 065
  3. EXTRA STRENGTH TYLENOL [Suspect]
     Indication: BACK PAIN
     Dosage: 4000MG-5000MG
     Route: 048
  4. EXTRA STRENGTH TYLENOL [Suspect]
     Indication: HEADACHE
     Dosage: 4000MG-5000MG
     Route: 048
  5. CALCIUM CARBONATE [Concomitant]
     Indication: GASTROOESOPHAGEAL REFLUX DISEASE
     Route: 065
  6. PRILOSEC [Concomitant]
     Indication: GASTROOESOPHAGEAL REFLUX DISEASE
     Route: 065

REACTIONS (2)
  - OVERDOSE [None]
  - OESOPHAGEAL HAEMORRHAGE [None]
